FAERS Safety Report 13593030 (Version 1)
Quarter: 2017Q2

REPORT INFORMATION
  Report Type: Spontaneous
  Country: US (occurrence: US)
  Receive Date: 20170530
  Receipt Date: 20170530
  Transmission Date: 20170830
  Serious: No
  Sender: FDA-Public Use
  Company Number: US-MYLANLABS-2016M1044179

PATIENT
  Age: 75 Year
  Sex: Female

DRUGS (4)
  1. ACYCLOVIR OINTMENT USP, 5% [Suspect]
     Active Substance: ACYCLOVIR
     Indication: ORAL HERPES
     Dosage: 1 DF, PRN
     Route: 061
     Dates: start: 201609, end: 201609
  2. XANAX [Concomitant]
     Active Substance: ALPRAZOLAM
     Indication: POOR QUALITY SLEEP
     Dosage: UNK, HS
     Route: 048
  3. ZOCOR [Concomitant]
     Active Substance: SIMVASTATIN
     Indication: BLOOD CHOLESTEROL
     Dosage: UNK
  4. PLENDIL [Concomitant]
     Active Substance: FELODIPINE
     Indication: BLOOD PRESSURE MANAGEMENT
     Dosage: UNK

REACTIONS (8)
  - Accidental exposure to product [Not Recovered/Not Resolved]
  - Dry mouth [Not Recovered/Not Resolved]
  - Oral discomfort [Not Recovered/Not Resolved]
  - Tongue discomfort [Not Recovered/Not Resolved]
  - Throat irritation [Not Recovered/Not Resolved]
  - Angular cheilitis [Not Recovered/Not Resolved]
  - Dysgeusia [Not Recovered/Not Resolved]
  - Expired product administered [Recovered/Resolved]

NARRATIVE: CASE EVENT DATE: 201609
